FAERS Safety Report 4478888-8 (Version None)
Quarter: 2004Q4

REPORT INFORMATION
  Report Type: 
  Country: None (occurrence: None)
  Receive Date: 20041015
  Receipt Date: 20040930
  Transmission Date: 20050328
  Serious: Yes (Life-Threatening, Hospitalization)
  Sender: FDA-Public Use
  Company Number: 105183ISR

PATIENT
  Age: 42 Year
  Sex: Female

DRUGS (2)
  1. GLATIRAMER ACETATE [Suspect]
     Indication: MULTIPLE SCLEROSIS
     Dosage: 20 MILLIGRAM SUBCUTANEOUS
     Route: 058
     Dates: start: 20021220, end: 20040929
  2. BACLOFEN [Concomitant]

REACTIONS (2)
  - ANAPHYLACTIC SHOCK [None]
  - DERMATITIS EXFOLIATIVE [None]
